FAERS Safety Report 7137900-8 (Version None)
Quarter: 2010Q4

REPORT INFORMATION
  Report Type: 
  Country: None (occurrence: None)
  Receive Date: 20101118
  Receipt Date: 20101112
  Transmission Date: 20110411
  Serious: Yes (Hospitalization)
  Sender: FDA-Public Use
  Company Number: 7019274

PATIENT
  Age: 82 Year
  Sex: Female

DRUGS (5)
  1. LEVOTHYROXINE SODIUM [Suspect]
     Indication: HYPOTHYROIDISM
     Dosage: 1 DF (1 DF, 1 IN 1 D), ORAL, LONG TIME AGO
     Route: 048
  2. IPERTEN (MANIDIPINE HYDROCHLORIDE) (10 MG, TABLET) (MANIDIPINE HYDROCH [Suspect]
     Indication: HYPERTENSION
     Dosage: 1 DF  (1 DF, 1 IN 1 D), ORAL, LONG TIME AGO
     Route: 048
  3. TEMERIT (NEBIVOLOL) (5 MG, TABLET) (NEBIVOLOL) [Suspect]
     Indication: HYPERTENSION
     Dosage: 1 DF (1 IN 1 D), ORAL, LONG TIME AGO
     Route: 048
  4. PRITORPLUS (PRITOR HYDROCHLOROTHIAZIDE) [Suspect]
     Indication: HYPERTENSION
     Dosage: 1 DF (1 IN 1 D), ORAL, LONG TIME AGO
     Route: 048
  5. KARDEGIC (ACETYLSALICYLATE LYSINE) (75 MG, POWDER FOR ORAL SOLUTION) ( [Suspect]
     Indication: THROMBOSIS PROPHYLAXIS
     Dosage: 1 DF (1 IN 1 D), ORAL, LONG TIME AGO
     Route: 048

REACTIONS (6)
  - BALANCE DISORDER [None]
  - DYSSTASIA [None]
  - HYPOKALAEMIA [None]
  - HYPONATRAEMIA [None]
  - IATROGENIC INJURY [None]
  - NAUSEA [None]
